FAERS Safety Report 19022906 (Version 2)
Quarter: 2021Q1

REPORT INFORMATION
  Report Type: Spontaneous
  Country: US (occurrence: US)
  Receive Date: 20210318
  Receipt Date: 20210322
  Transmission Date: 20210420
  Serious: Yes (Other)
  Sender: FDA-Public Use
  Company Number: US-CELLTRION INC.-2021US003447

PATIENT

DRUGS (2)
  1. INFLIXIMAB (UNKNOWN) [Suspect]
     Active Substance: INFLIXIMAB
     Indication: IRIDOCYCLITIS
  2. INFLIXIMAB (UNKNOWN) [Suspect]
     Active Substance: INFLIXIMAB
     Indication: JUVENILE PSORIATIC ARTHRITIS
     Dosage: UP TO 5MG/KG EVERY 6 WEEKS

REACTIONS (2)
  - Uveitis [Unknown]
  - Off label use [Unknown]
